FAERS Safety Report 5019693-3 (Version None)
Quarter: 2006Q2

REPORT INFORMATION
  Report Type: 
  Country: None (occurrence: None)
  Receive Date: 20060601
  Receipt Date: 20060523
  Transmission Date: 20061013
  Serious: Yes (Hospitalization)
  Sender: FDA-Public Use
  Company Number: 2006067573

PATIENT
  Sex: Female

DRUGS (3)
  1. ZOLOFT [Suspect]
     Indication: DEPRESSION
     Dosage: 300 MG (150 MG, 2 IN 1 D), UNKNOWN
     Route: 065
     Dates: start: 20010801
  2. SEROQUEL [Concomitant]
  3. KLONOPIN [Concomitant]

REACTIONS (13)
  - ANXIETY [None]
  - AUTOIMMUNE THYROIDITIS [None]
  - DEPRESSED LEVEL OF CONSCIOUSNESS [None]
  - DYSKINESIA [None]
  - FATIGUE [None]
  - HALLUCINATION [None]
  - HYPOTHYROIDISM [None]
  - LYME DISEASE [None]
  - PANIC ATTACK [None]
  - PSYCHOTIC DISORDER [None]
  - REBOUND EFFECT [None]
  - SUICIDAL IDEATION [None]
  - WEIGHT INCREASED [None]
